FAERS Safety Report 20129134 (Version 1)
Quarter: 2021Q4

REPORT INFORMATION
  Report Type: Spontaneous
  Country: US (occurrence: US)
  Receive Date: 20211130
  Receipt Date: 20211130
  Transmission Date: 20220303
  Serious: No
  Sender: FDA-Public Use
  Company Number: US-BAUSCH-BL-2021-038355

PATIENT
  Age: 65 Year
  Sex: Female
  Weight: 53.572 kg

DRUGS (1)
  1. LOTEMAX [Suspect]
     Active Substance: LOTEPREDNOL ETABONATE
     Indication: Corneal transplant
     Dosage: DAILY
     Route: 065

REACTIONS (6)
  - Product residue present [Unknown]
  - Instillation site irritation [Unknown]
  - Instillation site dryness [Unknown]
  - Product quality issue [Unknown]
  - Product use issue [Unknown]
  - Product substitution issue [Unknown]

NARRATIVE: CASE EVENT DATE: 20210101
